FAERS Safety Report 11258333 (Version 1)
Quarter: 2015Q3

REPORT INFORMATION
  Report Type: Spontaneous
  Country: US (occurrence: US)
  Receive Date: 20150710
  Receipt Date: 20150710
  Transmission Date: 20151125
  Serious: No
  Sender: FDA-Public Use
  Company Number: US-AMGEN-USASP2015067547

PATIENT
  Age: 61 Year
  Sex: Female

DRUGS (2)
  1. ENBREL [Suspect]
     Active Substance: ETANERCEPT
     Indication: RHEUMATOID ARTHRITIS
     Dosage: 50 MG, QWK
     Route: 065
     Dates: start: 201502
  2. METHOTREXATE [Suspect]
     Active Substance: METHOTREXATE
     Indication: PRODUCT USED FOR UNKNOWN INDICATION
     Dosage: UNK
     Route: 065

REACTIONS (13)
  - Aphasia [Not Recovered/Not Resolved]
  - Headache [Not Recovered/Not Resolved]
  - Body temperature fluctuation [Recovered/Resolved]
  - Injection site urticaria [Recovered/Resolved]
  - Exercise tolerance decreased [Not Recovered/Not Resolved]
  - Dizziness [Not Recovered/Not Resolved]
  - Tension headache [Not Recovered/Not Resolved]
  - Sinusitis [Recovered/Resolved]
  - Ill-defined disorder [Not Recovered/Not Resolved]
  - Nausea [Not Recovered/Not Resolved]
  - Tongue disorder [Not Recovered/Not Resolved]
  - Injection site haemorrhage [Recovered/Resolved]
  - Feeling abnormal [Not Recovered/Not Resolved]

NARRATIVE: CASE EVENT DATE: 2015
